FAERS Safety Report 8298958-6 (Version None)
Quarter: 2012Q2

REPORT INFORMATION
  Report Type: 
  Country: None (occurrence: None)
  Receive Date: 20120419
  Receipt Date: 20120413
  Transmission Date: 20120825
  Serious: Yes (Hospitalization, Other)
  Sender: FDA-Public Use
  Company Number: PHHY2012BR032138

PATIENT
  Sex: Female

DRUGS (1)
  1. EXFORGE [Suspect]

REACTIONS (3)
  - BLOOD PRESSURE FLUCTUATION [None]
  - DIABETES MELLITUS [None]
  - PNEUMONIA [None]
